FAERS Safety Report 16107203 (Version 5)
Quarter: 2019Q2

REPORT INFORMATION
  Report Type: Spontaneous
  Country: AR (occurrence: AR)
  Receive Date: 20190322
  Receipt Date: 20190405
  Transmission Date: 20190711
  Serious: Yes (Other)
  Sender: FDA-Public Use
  Company Number: PHHY2019AR063187

PATIENT
  Sex: Female
  Weight: 41 kg

DRUGS (2)
  1. DUOTRAV (ALC) [Suspect]
     Active Substance: TIMOLOL MALEATE\TRAVOPROST
     Indication: DEVELOPMENTAL GLAUCOMA
     Dosage: 1 GTT, QD (AT NIGHT)
     Route: 047
     Dates: start: 201706, end: 201903
  2. SIMBRINZA [Suspect]
     Active Substance: BRIMONIDINE TARTRATE\BRINZOLAMIDE
     Indication: PRODUCT USED FOR UNKNOWN INDICATION
     Dosage: UNK
     Route: 065
     Dates: start: 201706

REACTIONS (8)
  - Pulmonary embolism [Unknown]
  - Deep vein thrombosis [Unknown]
  - Vaginal haemorrhage [Recovered/Resolved]
  - Pain [Recovered/Resolved]
  - Gastrointestinal disorder [Recovered/Resolved]
  - Product label issue [Unknown]
  - Uterine contractions abnormal [Recovered/Resolved]
  - Presyncope [Recovered/Resolved]

NARRATIVE: CASE EVENT DATE: 2017
